FAERS Safety Report 22110391 (Version 2)
Quarter: 2023Q2

REPORT INFORMATION
  Report Type: Report from Study
  Country: US (occurrence: US)
  Receive Date: 20230317
  Receipt Date: 20230417
  Transmission Date: 20230721
  Serious: No
  Sender: FDA-Public Use
  Company Number: US-BRISTOL-MYERS SQUIBB COMPANY-2023-039565

PATIENT
  Age: 83 Year
  Sex: Female
  Weight: 66.22 kg

DRUGS (7)
  1. CAMZYOS [Suspect]
     Active Substance: MAVACAMTEN
     Indication: Left ventricular failure
     Dosage: DOSE : UNAVAILABLE;     FREQ : 1 CAPSULE DAILY
     Route: 048
  2. CALCIUM CARBONATE [Concomitant]
     Active Substance: CALCIUM CARBONATE
     Indication: Product used for unknown indication
  3. ALLEGRA [Concomitant]
     Active Substance: FEXOFENADINE HYDROCHLORIDE
     Indication: Product used for unknown indication
  4. AZELASTINE [Concomitant]
     Active Substance: AZELASTINE
     Indication: Product used for unknown indication
  5. ELIQUIS [Concomitant]
     Active Substance: APIXABAN
     Indication: Hypotension
  6. LOSARTAN [Concomitant]
     Active Substance: LOSARTAN
     Indication: Product used for unknown indication
  7. GUANFACINE [Concomitant]
     Active Substance: GUANFACINE
     Indication: Product used for unknown indication

REACTIONS (3)
  - Hypotension [Unknown]
  - Speech disorder [Unknown]
  - Fatigue [Unknown]
